FAERS Safety Report 24411977 (Version 1)
Quarter: 2024Q4

REPORT INFORMATION
  Report Type: Spontaneous
  Country: US (occurrence: US)
  Receive Date: 20241008
  Receipt Date: 20241008
  Transmission Date: 20250115
  Serious: Yes (Life-Threatening)
  Sender: GUERBET
  Company Number: US-GUERBET / LLC-US-20240154

PATIENT
  Age: 77 Year
  Sex: Male
  Weight: 59 kg

DRUGS (2)
  1. OPTIRAY 350 [Suspect]
     Active Substance: IOVERSOL
     Indication: Arteriogram carotid
     Route: 042
     Dates: start: 20240922, end: 20240922
  2. OPTIRAY 350 [Suspect]
     Active Substance: IOVERSOL
     Indication: Angiogram

REACTIONS (1)
  - Contrast media allergy [Recovered/Resolved]

NARRATIVE: CASE EVENT DATE: 20240922
